FAERS Safety Report 10164141 (Version 1)
Quarter: 2014Q2

REPORT INFORMATION
  Report Type: Spontaneous
  Country: US (occurrence: US)
  Receive Date: 20140510
  Receipt Date: 20140510
  Transmission Date: 20141212
  Serious: No
  Sender: FDA-Public Use
  Company Number: US-BRISTOL-MYERS SQUIBB COMPANY-19987338

PATIENT
  Age: 47 Year
  Sex: Female
  Weight: 75.28 kg

DRUGS (6)
  1. BYDUREON [Suspect]
     Dates: start: 201311
  2. GABAPENTIN [Concomitant]
  3. METFORMIN [Concomitant]
  4. LEXAPRO [Concomitant]
  5. AMBIEN [Concomitant]
  6. LISINOPRIL [Concomitant]

REACTIONS (3)
  - Injection site nodule [Not Recovered/Not Resolved]
  - Injection site pruritus [Not Recovered/Not Resolved]
  - Injection site pain [Not Recovered/Not Resolved]
